FAERS Safety Report 7131982-5 (Version None)
Quarter: 2010Q4

REPORT INFORMATION
  Report Type: 
  Country: None (occurrence: None)
  Receive Date: 20101124
  Receipt Date: 20101124
  Transmission Date: 20110411
  Serious: No
  Sender: FDA-Public Use
  Company Number: None

PATIENT
  Age: 81 Year
  Sex: Female
  Weight: 55.3388 kg

DRUGS (1)
  1. RIVASTIGMINE [Suspect]
     Dosage: 1 CAPSULE TWICE DAILY
     Dates: start: 20101031

REACTIONS (2)
  - DIARRHOEA [None]
  - VOMITING [None]
